FAERS Safety Report 18114990 (Version 1)
Quarter: 2020Q3

REPORT INFORMATION
  Report Type: Spontaneous
  Country: US (occurrence: US)
  Receive Date: 20200805
  Receipt Date: 20200805
  Transmission Date: 20201103
  Serious: Yes (Hospitalization, Other)
  Sender: FDA-Public Use
  Company Number: US-PURDUE PHARMA-USA-2020-0153489

PATIENT
  Age: 50 Year
  Sex: Male

DRUGS (2)
  1. OXYCODONE HYDROCHLORIDE (SIMILAR TO NDA 22?272) [Suspect]
     Active Substance: OXYCODONE HYDROCHLORIDE
     Dosage: (10MG) 1 TABLET, Q4H
     Route: 048
     Dates: end: 2016
  2. OXYCODONE HYDROCHLORIDE (SIMILAR TO NDA 22?272) [Suspect]
     Active Substance: OXYCODONE HYDROCHLORIDE
     Indication: PAIN
     Dosage: (5MG) 1 TABLET, Q4H
     Route: 048
     Dates: end: 2016

REACTIONS (6)
  - Stent placement [Not Recovered/Not Resolved]
  - Myocardial infarction [Unknown]
  - Heart rate increased [Unknown]
  - Limb injury [Unknown]
  - Shoulder operation [Not Recovered/Not Resolved]
  - Knee operation [Not Recovered/Not Resolved]

NARRATIVE: CASE EVENT DATE: 2009
